FAERS Safety Report 4448912-7 (Version None)
Quarter: 2004Q3

REPORT INFORMATION
  Report Type: 
  Country: None (occurrence: None)
  Receive Date: 20040909
  Receipt Date: 20040819
  Transmission Date: 20050211
  Serious: Yes (Other)
  Sender: FDA-Public Use
  Company Number: A03200402844

PATIENT
  Age: 39 Year
  Sex: Female

DRUGS (1)
  1. PLAQUENIL [Suspect]
     Dosage: ORAL
     Route: 048

REACTIONS (2)
  - DYSPLASIA [None]
  - SMEAR CERVIX ABNORMAL [None]
